FAERS Safety Report 15925792 (Version 1)
Quarter: 2019Q1

REPORT INFORMATION
  Report Type: Spontaneous
  Country: US (occurrence: US)
  Receive Date: 20190115
  Receipt Date: 20190115
  Transmission Date: 20190417
  Serious: No
  Sender: FDA-Public Use
  Company Number: None

PATIENT

DRUGS (1)
  1. 21ST CENTURY BIOTIN 10,000MG [Suspect]
     Active Substance: BIOTIN
     Indication: THERAPEUTIC SKIN CARE TOPICAL
     Dosage: ?          QUANTITY:10000 UG MICROGRAM(S);?
     Route: 048
     Dates: start: 201707, end: 20180511

REACTIONS (5)
  - Headache [None]
  - Incorrect dose administered [None]
  - Neck pain [None]
  - Nervous system disorder [None]
  - Herpes zoster [None]

NARRATIVE: CASE EVENT DATE: 20180511
